FAERS Safety Report 19919923 (Version 2)
Quarter: 2021Q4

REPORT INFORMATION
  Report Type: Report from Study
  Country: None (occurrence: US)
  Receive Date: 20211005
  Receipt Date: 20211011
  Transmission Date: 20220303
  Serious: Yes (Other)
  Sender: FDA-Public Use
  Company Number: US-ABBVIE-21K-163-4104572-00

PATIENT
  Age: 62 Year
  Sex: Female

DRUGS (3)
  1. CREON [Suspect]
     Active Substance: PANCRELIPASE AMYLASE\PANCRELIPASE LIPASE\PANCRELIPASE PROTEASE
     Indication: Product used for unknown indication
     Route: 048
  2. CREON [Suspect]
     Active Substance: PANCRELIPASE AMYLASE\PANCRELIPASE LIPASE\PANCRELIPASE PROTEASE
     Dosage: TWO CAPSULES WITH MEALS AND ONE CAPSULE WITH SNACKS
     Route: 048
     Dates: start: 202106, end: 2021
  3. CREON [Suspect]
     Active Substance: PANCRELIPASE AMYLASE\PANCRELIPASE LIPASE\PANCRELIPASE PROTEASE
     Dosage: TWO CAPSULES WITH MEALS AND ONE CAPSULE WITH SNACKS
     Route: 048
     Dates: start: 202110

REACTIONS (17)
  - Cholecystectomy [Unknown]
  - Cholangitis infective [Recovered/Resolved]
  - Gallbladder disorder [Recovered/Resolved]
  - White blood cell count increased [Recovering/Resolving]
  - Leukaemia [Recovering/Resolving]
  - Abdominal pain upper [Recovering/Resolving]
  - Dumping syndrome [Recovering/Resolving]
  - Abdominal distension [Recovering/Resolving]
  - Feeding disorder [Recovered/Resolved]
  - Depression [Recovering/Resolving]
  - Hyperhidrosis [Recovering/Resolving]
  - SARS-CoV-2 test positive [Recovering/Resolving]
  - Nasal disorder [Recovered/Resolved]
  - Chills [Recovered/Resolved]
  - Ear pain [Recovered/Resolved]
  - Pain [Recovered/Resolved]
  - Diarrhoea [Recovering/Resolving]

NARRATIVE: CASE EVENT DATE: 20210101
